FAERS Safety Report 19115976 (Version 1)
Quarter: 2021Q2

REPORT INFORMATION
  Report Type: Other
  Country: FR (occurrence: FR)
  Receive Date: 20210409
  Receipt Date: 20210409
  Transmission Date: 20210717
  Serious: Yes (Other)
  Sender: FDA-Public Use
  Company Number: FR-VALIDUS PHARMACEUTICALS LLC-FR-2021VAL000569

PATIENT
  Age: 86 Year
  Sex: Male
  Weight: 73.7 kg

DRUGS (4)
  1. ROVAMYCINE                         /00074401/ [Suspect]
     Active Substance: SPIRAMYCIN
     Indication: INFECTION
     Dosage: 4.5 MILLION IU, QD
     Route: 042
     Dates: start: 20190222, end: 20190225
  2. CEFTRIAXONE. [Suspect]
     Active Substance: CEFTRIAXONE
     Indication: INFECTION
     Dosage: UNK
     Route: 042
     Dates: start: 20190223, end: 20190228
  3. RISORDAN                           /07346501/ [Suspect]
     Active Substance: ISOSORBIDE DINITRATE
     Indication: ACUTE PULMONARY OEDEMA
     Dosage: UNK
     Route: 048
     Dates: start: 20190222, end: 20190225
  4. FUROSEMIDE. [Suspect]
     Active Substance: FUROSEMIDE
     Indication: ACUTE PULMONARY OEDEMA
     Dosage: 1 (UNIT NOT REPORTED), QD
     Route: 048
     Dates: start: 20190222, end: 20190225

REACTIONS (1)
  - Hyperlipasaemia [Recovering/Resolving]

NARRATIVE: CASE EVENT DATE: 20190225
